FAERS Safety Report 9193979 (Version 1)
Quarter: 2013Q1

REPORT INFORMATION
  Report Type: Spontaneous
  Country: FR (occurrence: FR)
  Receive Date: 20130327
  Receipt Date: 20130327
  Transmission Date: 20140127
  Serious: Yes (Other)
  Sender: FDA-Public Use
  Company Number: FR-PFIZER INC-2013092488

PATIENT
  Age: 6 Week
  Sex: Male

DRUGS (2)
  1. REVATIO [Suspect]
     Indication: PULMONARY ARTERIAL HYPERTENSION
     Dosage: 3.4 MG, EVERY 4 HRS
     Route: 048
     Dates: start: 20100731
  2. SANDOSTATINE [Concomitant]
     Indication: CHYLOTHORAX
     Dosage: UNK
     Dates: start: 20100824, end: 20100908

REACTIONS (1)
  - Rectal haemorrhage [Recovered/Resolved]
